FAERS Safety Report 10411996 (Version 6)
Quarter: 2015Q2

REPORT INFORMATION
  Report Type: Report from Study
  Country: BR (occurrence: BR)
  Receive Date: 20140827
  Receipt Date: 20150407
  Transmission Date: 20150821
  Serious: Yes (Other)
  Sender: FDA-Public Use
  Company Number: PHHY2014BR106466

PATIENT
  Sex: Female
  Weight: 93 kg

DRUGS (7)
  1. METFORMIN [Suspect]
     Active Substance: METFORMIN HYDROCHLORIDE
     Indication: PRODUCT USED FOR UNKNOWN INDICATION
     Route: 065
  2. METFORMIN [Suspect]
     Active Substance: METFORMIN HYDROCHLORIDE
     Dosage: 850 MG, UNK
     Route: 048
  3. CABERGOLINE. [Suspect]
     Active Substance: CABERGOLINE
     Indication: NEOPLASM
     Dosage: 50 MG, TIW
     Route: 048
     Dates: start: 2013
  4. DIOVAN [Suspect]
     Active Substance: VALSARTAN
     Indication: PRODUCT USED FOR UNKNOWN INDICATION
     Dosage: 320 MG, UNK
     Route: 065
  5. METFORMIN [Suspect]
     Active Substance: METFORMIN HYDROCHLORIDE
     Dosage: UNK
     Route: 065
  6. GLUCOSAMINE/CHONDROITIN            /08437701/ [Concomitant]
     Indication: SYNOVIAL DISORDER
     Route: 048
  7. SANDOSTATIN LAR DEPOT [Suspect]
     Active Substance: OCTREOTIDE ACETATE
     Indication: ACROMEGALY
     Dosage: 2 DF, QMO (40 MG, MONTHLY)
     Route: 030
     Dates: start: 200406

REACTIONS (13)
  - Synovial disorder [Recovering/Resolving]
  - Macular hole [Recovering/Resolving]
  - Renal disorder [Recovering/Resolving]
  - Pain [Unknown]
  - Osteoarthritis [Recovering/Resolving]
  - Visual impairment [Recovering/Resolving]
  - Retinal detachment [Recovering/Resolving]
  - Blindness unilateral [Not Recovered/Not Resolved]
  - Dysphonia [Recovering/Resolving]
  - Reading disorder [Not Recovered/Not Resolved]
  - Blood growth hormone increased [Not Recovered/Not Resolved]
  - Weight decreased [Not Recovered/Not Resolved]
  - Condition aggravated [Recovering/Resolving]

NARRATIVE: CASE EVENT DATE: 2004
